FAERS Safety Report 8357458-5 (Version None)
Quarter: 2012Q2

REPORT INFORMATION
  Report Type: 
  Country: None (occurrence: None)
  Receive Date: 20120511
  Receipt Date: 20120430
  Transmission Date: 20120825
  Serious: Yes (Other)
  Sender: FDA-Public Use
  Company Number: WAES 1201USA02943

PATIENT
  Age: 77 Year
  Sex: Male
  Weight: 95.2554 kg

DRUGS (2)
  1. LIPITOR [Suspect]
     Indication: BLOOD CHOLESTEROL INCREASED
     Dosage: 80 MG/DAILY/PO
     Route: 048
     Dates: start: 20070101
  2. ZOCOR [Suspect]
     Indication: BLOOD CHOLESTEROL INCREASED
     Dosage: 80 MG/DAILY/PO
     Route: 048
     Dates: end: 20090101

REACTIONS (4)
  - MULTIPLE MYELOMA [None]
  - HALLUCINATION [None]
  - CONVULSION [None]
  - ILL-DEFINED DISORDER [None]
